FAERS Safety Report 24694443 (Version 1)
Quarter: 2024Q4

REPORT INFORMATION
  Report Type: Spontaneous
  Country: IT (occurrence: IT)
  Receive Date: 20241204
  Receipt Date: 20241204
  Transmission Date: 20250115
  Serious: Yes (Other)
  Sender: GLAND PHARMA LTD
  Company Number: IT-GLANDPHARMA-IT-2024GLNLIT01066

PATIENT
  Age: 71 Year
  Sex: Male

DRUGS (2)
  1. OXALIPLATIN [Suspect]
     Active Substance: OXALIPLATIN
     Indication: Colorectal cancer
     Route: 065
     Dates: end: 202105
  2. CAPECITABINE [Suspect]
     Active Substance: CAPECITABINE
     Indication: Colorectal cancer
     Route: 065
     Dates: start: 2020, end: 202105

REACTIONS (1)
  - Acute promyelocytic leukaemia [Unknown]

NARRATIVE: CASE EVENT DATE: 20230101
